FAERS Safety Report 5382786-5 (Version None)
Quarter: 2007Q3

REPORT INFORMATION
  Report Type: 
  Country: None (occurrence: None)
  Receive Date: 20070710
  Receipt Date: 20070702
  Transmission Date: 20080115
  Serious: Yes (Other)
  Sender: FDA-Public Use
  Company Number: US-AMGEN-US223614

PATIENT
  Sex: Female
  Weight: 84 kg

DRUGS (17)
  1. PROCRIT [Suspect]
     Indication: RENAL FAILURE CHRONIC
     Route: 058
     Dates: start: 20050101
  2. BUMEX [Concomitant]
     Route: 048
  3. LANTUS [Concomitant]
     Route: 058
     Dates: start: 20050101
  4. INSULIN [Concomitant]
     Route: 058
  5. COUMADIN [Concomitant]
     Route: 048
  6. FOLIC ACID [Concomitant]
     Route: 048
  7. VITAMIN B-12 [Concomitant]
     Route: 065
  8. CARDURA [Concomitant]
     Route: 048
  9. COREG [Concomitant]
     Route: 048
  10. ZOLOFT [Concomitant]
     Route: 048
  11. DARVON [Concomitant]
     Route: 048
  12. OMEPRAZOLE [Concomitant]
     Route: 048
  13. AMBIEN [Concomitant]
     Route: 048
  14. COLCHICINE [Concomitant]
     Route: 048
  15. ZYLOPRIM [Concomitant]
     Route: 048
  16. ZESTRIL [Concomitant]
     Route: 048
  17. COZAAR [Concomitant]
     Route: 048

REACTIONS (1)
  - BREAST MASS [None]
